FAERS Safety Report 20667335 (Version 1)
Quarter: 2022Q2

REPORT INFORMATION
  Report Type: Spontaneous
  Country: IT (occurrence: IT)
  Receive Date: 20220404
  Receipt Date: 20220404
  Transmission Date: 20220720
  Serious: Yes (Congenital Anomaly)
  Sender: FDA-Public Use
  Company Number: IT-NOVOPROD-904853

PATIENT
  Sex: Male

DRUGS (2)
  1. NOVORAPID [Suspect]
     Active Substance: INSULIN ASPART
     Indication: Type 2 diabetes mellitus
     Dosage: 10 IU WITH EACH MEAL
     Route: 064
  2. LEVEMIR [Suspect]
     Active Substance: INSULIN DETEMIR
     Indication: Type 2 diabetes mellitus
     Dosage: 18 IU AT DINNER
     Route: 064

REACTIONS (3)
  - Hypospadias [Unknown]
  - Anal atresia [Unknown]
  - Foetal exposure during pregnancy [Recovered/Resolved]
